FAERS Safety Report 12568449 (Version 1)
Quarter: 2016Q3

REPORT INFORMATION
  Report Type: Spontaneous
  Country: US (occurrence: US)
  Receive Date: 20160718
  Receipt Date: 20160718
  Transmission Date: 20161109
  Serious: No
  Sender: FDA-Public Use
  Company Number: US-ASTRAZENECA-2016SE73954

PATIENT
  Sex: Male

DRUGS (2)
  1. NUPLAZID [Concomitant]
     Active Substance: PIMAVANSERIN TARTRATE
  2. SEROQUEL [Suspect]
     Active Substance: QUETIAPINE FUMARATE
     Route: 048

REACTIONS (10)
  - Hyperhidrosis [Unknown]
  - Asthenia [Unknown]
  - Adverse event [Unknown]
  - Fatigue [Unknown]
  - Confusional state [Unknown]
  - Adverse drug reaction [Unknown]
  - Hallucination [Unknown]
  - Anger [Unknown]
  - Agitation [Unknown]
  - Dyspnoea [Unknown]
